FAERS Safety Report 10219684 (Version 1)
Quarter: 2014Q2

REPORT INFORMATION
  Report Type: Spontaneous
  Country: US (occurrence: None)
  Receive Date: 20140604
  Receipt Date: 20140604
  Transmission Date: 20141212
  Serious: No
  Sender: FDA-Public Use
  Company Number: None

PATIENT
  Age: 59 Year
  Sex: Female

DRUGS (1)
  1. ENBREL 50 MG [Suspect]
     Indication: PSORIASIS
     Dosage: 50 MG, TWICE WEEKLY, SUB Q
     Route: 058
     Dates: start: 20130821

REACTIONS (1)
  - Cerebrovascular accident [None]
